FAERS Safety Report 8119842 (Version 2)
Quarter: 2014Q3

REPORT INFORMATION
  Report Type: Report from Study
  Country: US (occurrence: US)
  Receive Date: 20110905
  Receipt Date: 20140718
  Transmission Date: 20150326
  Serious: Yes (Death, Hospitalization, Other)
  Sender: FDA-Public Use
  Company Number: US-BRISTOL-MYERS SQUIBB COMPANY-16008112

PATIENT
  Age: 73 Year
  Sex: Female
  Weight: 51.27 kg

DRUGS (9)
  1. IPILIMUMAB [Suspect]
     Active Substance: IPILIMUMAB
     Indication: MALIGNANT MELANOMA
     Dosage: 10MG/KG IV OVER 90MINS D1 Q12 WKS, LAST DOSE ON 27JUL2011
     Route: 042
     Dates: start: 20110608, end: 20110727
  2. VENTOLIN [Concomitant]
     Active Substance: ALBUTEROL SULFATE
  3. QVAR [Concomitant]
     Active Substance: BECLOMETHASONE DIPROPIONATE
  4. ZOLPIDEM TARTRATE. [Concomitant]
     Active Substance: ZOLPIDEM TARTRATE
  5. SPIRIVA [Concomitant]
     Active Substance: TIOTROPIUM BROMIDE MONOHYDRATE
     Dosage: SPIRIVA HANDIHALER
  6. ALBUTEROL SULFATE. [Concomitant]
     Active Substance: ALBUTEROL SULFATE
  7. MORPHINE [Concomitant]
     Active Substance: MORPHINE
  8. IMODIUM [Concomitant]
     Active Substance: LOPERAMIDE HYDROCHLORIDE
     Dosage: IMMODIUM AD
  9. ROPINIROLE. [Concomitant]
     Active Substance: ROPINIROLE
     Dosage: ROPINIROLE HCL

REACTIONS (5)
  - Confusional state [Unknown]
  - Respiratory failure [Fatal]
  - Renal failure acute [Unknown]
  - Cerebrovascular accident [Unknown]
  - Hypotension [Unknown]

NARRATIVE: CASE EVENT DATE: 20110811
